FAERS Safety Report 7539281-4 (Version None)
Quarter: 2011Q2

REPORT INFORMATION
  Report Type: 
  Country: None (occurrence: None)
  Receive Date: 20110610
  Receipt Date: 20110531
  Transmission Date: 20111010
  Serious: Yes (Hospitalization)
  Sender: FDA-Public Use
  Company Number: CO-ELI_LILLY_AND_COMPANY-CO201106000932

PATIENT
  Sex: Female

DRUGS (8)
  1. GLYBURIDE [Concomitant]
  2. DRUG USED IN DIABETES [Concomitant]
  3. DOLEX                              /00729302/ [Concomitant]
  4. FUROSEMIDE [Concomitant]
  5. LOSARTAN POTASSIUM [Concomitant]
  6. ACETAMINOPHEN W/ CODEINE [Concomitant]
  7. BYETTA [Suspect]
     Indication: TYPE 2 DIABETES MELLITUS
     Dosage: 5 UG, BID
     Route: 058
     Dates: start: 20110511, end: 20110529
  8. GLUCOVANCE [Concomitant]

REACTIONS (4)
  - HAEMATOMA [None]
  - RESPIRATORY TRACT INFECTION [None]
  - ROAD TRAFFIC ACCIDENT [None]
  - BLOOD GLUCOSE INCREASED [None]
